FAERS Safety Report 7066885-8 (Version None)
Quarter: 2010Q4

REPORT INFORMATION
  Report Type: 
  Country: None (occurrence: None)
  Receive Date: 20101028
  Receipt Date: 20101014
  Transmission Date: 20110411
  Serious: Yes (Hospitalization)
  Sender: FDA-Public Use
  Company Number: ES-AMGEN-US398149

PATIENT

DRUGS (5)
  1. ENBREL [Suspect]
     Indication: RHEUMATOID ARTHRITIS
     Dosage: 50 MG, QWK
     Dates: start: 20090306, end: 20100310
  2. METHOTREXATE [Concomitant]
     Dosage: UNK UNK, UNK
  3. METHOTREXATE [Concomitant]
     Dosage: UNKNOWN
  4. ACFOL [Concomitant]
     Dosage: UNKNOWN
  5. DACORTIN [Concomitant]
     Dosage: UNKNOWN

REACTIONS (3)
  - ARRHYTHMIA [None]
  - DEEP VEIN THROMBOSIS [None]
  - TREATMENT FAILURE [None]
